FAERS Safety Report 7417648-2 (Version None)
Quarter: 2011Q2

REPORT INFORMATION
  Report Type: 
  Country: None (occurrence: None)
  Receive Date: 20110415
  Receipt Date: 20110405
  Transmission Date: 20111010
  Serious: Yes (Other)
  Sender: FDA-Public Use
  Company Number: UG-ABBOTT-11P-165-0703696-00

PATIENT
  Age: 32 Year
  Sex: Female

DRUGS (10)
  1. RALTEGRAVIR [Concomitant]
     Indication: HIV INFECTION
     Dates: start: 20110110, end: 20110207
  2. ALBUTEROL SULFATE AUTOHALER [Concomitant]
     Indication: PRODUCT USED FOR UNKNOWN INDICATION
     Dates: start: 20110307, end: 20110321
  3. ALUVIA TABLETS [Suspect]
     Dates: start: 20110228, end: 20110312
  4. ALUVIA TABLETS [Suspect]
     Dates: start: 20110313
  5. SEPTRA [Concomitant]
     Indication: PRODUCT USED FOR UNKNOWN INDICATION
     Dates: start: 20090316, end: 20110313
  6. AMICLACID [Concomitant]
     Indication: PRODUCT USED FOR UNKNOWN INDICATION
     Dates: start: 20110313, end: 20110315
  7. ALUVIA TABLETS [Suspect]
     Indication: HIV INFECTION
     Route: 048
     Dates: start: 20110110, end: 20110207
  8. ARTEMETHER [Concomitant]
     Indication: MALARIA
     Dates: start: 20110207, end: 20110209
  9. AMOXY-CLAV [Concomitant]
     Indication: PRODUCT USED FOR UNKNOWN INDICATION
     Dates: start: 20110307, end: 20110317
  10. RALTEGRAVIR [Concomitant]
     Dates: start: 20110313

REACTIONS (6)
  - RASH PAPULAR [None]
  - RASH PRURITIC [None]
  - HYPERSENSITIVITY [None]
  - RASH GENERALISED [None]
  - JAUNDICE [None]
  - BRONCHOPNEUMONIA [None]
